FAERS Safety Report 6371588-9 (Version None)
Quarter: 2009Q3

REPORT INFORMATION
  Report Type: 
  Country: None (occurrence: None)
  Receive Date: 20090923
  Receipt Date: 20080421
  Transmission Date: 20100115
  Serious: No
  Sender: FDA-Public Use
  Company Number: US-ASTRAZENECA-2007UW24621

PATIENT
  Sex: Female
  Weight: 90.7 kg

DRUGS (30)
  1. SEROQUEL [Suspect]
     Indication: SLEEP DISORDER
     Dosage: 25-300 MG
     Route: 048
     Dates: start: 20030325
  2. SEROQUEL [Suspect]
     Route: 048
     Dates: start: 20060101, end: 20070101
  3. BUSPAR [Concomitant]
  4. WELLBUTRIN [Concomitant]
  5. LAMICTAL [Concomitant]
  6. TRILEPTAL [Concomitant]
     Dates: start: 20030325
  7. PAXIL [Concomitant]
     Dates: start: 20030325
  8. CLONAZEPAM [Concomitant]
     Dates: start: 20030325
  9. FUROSEMIDE [Concomitant]
     Dates: start: 20030325
  10. CEFACLOR [Concomitant]
     Dates: start: 20030323
  11. DIPHENHYDRAMINE HCL [Concomitant]
     Dates: start: 20030326
  12. NITROFURANTOIN [Concomitant]
     Dates: start: 20030331
  13. ACTOS [Concomitant]
     Dates: start: 20030222
  14. DICYCLOMINE [Concomitant]
     Dates: start: 20030403
  15. METHOCARBAMOL [Concomitant]
     Dates: start: 20030311
  16. TIZANIDINE HCL [Concomitant]
     Dates: start: 20030407
  17. LIPITOR [Concomitant]
     Dates: start: 20030211
  18. DEPAKOTE [Concomitant]
     Dates: start: 20030106
  19. HYDROCODONE [Concomitant]
     Dosage: 5-500
     Dates: start: 20030311
  20. BEXTRA [Concomitant]
     Dates: start: 20030115
  21. OXYBUTYNIN CHLORIDE [Concomitant]
     Dates: start: 20040406
  22. ZETIA [Concomitant]
     Dates: start: 20040406
  23. PROMETHAZINE [Concomitant]
     Dates: start: 20040412
  24. TRAMADOL HCL [Concomitant]
     Dates: start: 20040421
  25. MECLIZINE [Concomitant]
     Dates: start: 20040422
  26. ACIPHEX [Concomitant]
     Dates: start: 20040422
  27. SYNTHROID [Concomitant]
     Dosage: 112-125MG
     Dates: start: 20030222
  28. NEURONTIN [Concomitant]
     Dates: start: 20040503
  29. ZOCOR [Concomitant]
     Dates: start: 20040503
  30. PROTONIX [Concomitant]
     Dates: start: 20030331

REACTIONS (2)
  - DIABETES MELLITUS [None]
  - HYPERSOMNIA [None]
